FAERS Safety Report 24246057 (Version 1)
Quarter: 2024Q3

REPORT INFORMATION
  Report Type: Spontaneous
  Country: CN (occurrence: CN)
  Receive Date: 20240824
  Receipt Date: 20240824
  Transmission Date: 20241017
  Serious: Yes (Death, Life-Threatening, Hospitalization)
  Sender: ACCORD
  Company Number: CN-MLMSERVICE-20240808-PI154511-00077-1

PATIENT
  Age: 43 Year
  Sex: Female

DRUGS (15)
  1. DOCETAXEL [Suspect]
     Active Substance: DOCETAXEL\DOCETAXEL ANHYDROUS
     Indication: Invasive breast carcinoma
     Dosage: D1, FOUR SESSIONS
     Dates: start: 201401, end: 2014
  2. FLUOROURACIL [Suspect]
     Active Substance: FLUOROURACIL
     Indication: Breast cancer metastatic
     Dosage: 0.75 D1-5, FOUR SESSIONS
     Dates: start: 201401, end: 2014
  3. RIVOCERANIB [Suspect]
     Active Substance: RIVOCERANIB
     Indication: Breast cancer metastatic
     Dates: start: 201502
  4. CAPECITABINE [Suspect]
     Active Substance: CAPECITABINE
     Indication: Breast cancer metastatic
     Dosage: 1.5 G BID D1-14, FOR 3 SESSIONS
     Dates: start: 2014, end: 2014
  5. CISPLATIN [Suspect]
     Active Substance: CISPLATIN
     Indication: Invasive breast carcinoma
     Dosage: D1, FOUR SESSIONS
     Dates: start: 201401, end: 2014
  6. OXALIPLATIN [Suspect]
     Active Substance: OXALIPLATIN
     Indication: Invasive breast carcinoma
     Dosage: 0.2 D1, 2 SESSIONS
     Dates: start: 20140926, end: 2014
  7. DOCETAXEL [Suspect]
     Active Substance: DOCETAXEL\DOCETAXEL ANHYDROUS
     Indication: Breast cancer metastatic
     Dosage: D1, FOUR SESSIONS
     Dates: start: 201401, end: 2014
  8. CISPLATIN [Suspect]
     Active Substance: CISPLATIN
     Indication: Breast cancer metastatic
     Dosage: D1, FOUR SESSIONS
     Dates: start: 201401, end: 2014
  9. CAPECITABINE [Suspect]
     Active Substance: CAPECITABINE
     Indication: Invasive breast carcinoma
     Dosage: 1.0 G BID D1-14, 2 SESSIONS
     Dates: start: 20140926, end: 2014
  10. CAPECITABINE [Suspect]
     Active Substance: CAPECITABINE
     Indication: Breast cancer metastatic
     Dosage: 1.0 G BID D1-14, 2 SESSIONS
     Dates: start: 20140926, end: 2014
  11. RIVOCERANIB [Suspect]
     Active Substance: RIVOCERANIB
     Indication: Targeted cancer therapy
     Dates: start: 201502
  12. FLUOROURACIL [Suspect]
     Active Substance: FLUOROURACIL
     Indication: Invasive breast carcinoma
     Dosage: 0.75 D1-5, FOUR SESSIONS
     Dates: start: 201401, end: 2014
  13. RIVOCERANIB [Suspect]
     Active Substance: RIVOCERANIB
     Indication: Invasive breast carcinoma
     Dates: start: 201502
  14. CAPECITABINE [Suspect]
     Active Substance: CAPECITABINE
     Indication: Invasive breast carcinoma
     Dosage: 1.5 G BID D1-14, FOR 3 SESSIONS
     Dates: start: 2014, end: 2014
  15. OXALIPLATIN [Suspect]
     Active Substance: OXALIPLATIN
     Indication: Breast cancer metastatic
     Dosage: 0.2 D1, 2 SESSIONS
     Dates: start: 20140926, end: 2014

REACTIONS (3)
  - Pneumonia [Fatal]
  - Myelosuppression [Fatal]
  - Sepsis [Fatal]
